FAERS Safety Report 18619293 (Version 1)
Quarter: 2020Q4

REPORT INFORMATION
  Report Type: Spontaneous
  Country: US (occurrence: US)
  Receive Date: 20201215
  Receipt Date: 20201215
  Transmission Date: 20210114
  Serious: No
  Sender: FDA-Public Use
  Company Number: US-ETHYPHARM-202001960

PATIENT
  Age: 55 Year
  Sex: Female

DRUGS (6)
  1. TIROSINT [Concomitant]
     Active Substance: LEVOTHYROXINE SODIUM
     Indication: HYPOTHYROIDISM
     Route: 065
  2. CALCIUM [Concomitant]
     Active Substance: CALCIUM
     Indication: BONE DENSITY ABNORMAL
     Route: 065
  3. MULTIVITAMIN [Concomitant]
     Active Substance: VITAMINS
     Route: 065
  4. BUPRENORPHINE. [Suspect]
     Active Substance: BUPRENORPHINE
     Indication: PAIN
     Dosage: NDC# 50383-0930-93
     Route: 060
     Dates: start: 20201130
  5. MEMANTINE. [Concomitant]
     Active Substance: MEMANTINE
     Indication: FIBROMYALGIA
     Route: 065
  6. ACETAMINOPHEN/CAFFEINE [Concomitant]
     Active Substance: ACETAMINOPHEN\CAFFEINE
     Indication: HEADACHE
     Route: 065

REACTIONS (6)
  - Lip swelling [Unknown]
  - Off label use [Unknown]
  - Mouth swelling [Unknown]
  - Pain [Unknown]
  - Headache [Unknown]
  - Abdominal discomfort [Unknown]

NARRATIVE: CASE EVENT DATE: 20201130
